FAERS Safety Report 7375017-8 (Version None)
Quarter: 2011Q1

REPORT INFORMATION
  Report Type: 
  Country: None (occurrence: None)
  Receive Date: 20110325
  Receipt Date: 20110226
  Transmission Date: 20110831
  Serious: Yes (Death, Hospitalization)
  Sender: FDA-Public Use
  Company Number: US-PFIZER INC-2011035470

PATIENT
  Age: 80 Year
  Sex: Female
  Weight: 78 kg

DRUGS (3)
  1. AZACITIDINE [Suspect]
     Indication: ACUTE MYELOID LEUKAEMIA
     Dosage: UNK
     Dates: end: 20100512
  2. HYDROXYUREA [Suspect]
     Dosage: UNK
     Dates: end: 20100428
  3. MYLOTARG [Suspect]
     Indication: ACUTE MYELOID LEUKAEMIA
     Dosage: 3 MG/M2 OVER 2 HRS ON DAY 8
     Route: 042
     Dates: end: 20100513

REACTIONS (7)
  - RESPIRATORY DISTRESS [None]
  - HYPOTENSION [None]
  - PULMONARY OEDEMA [None]
  - MYOCARDIAL ISCHAEMIA [None]
  - DISEASE PROGRESSION [None]
  - MYOCARDIAL INFARCTION [None]
  - ACUTE MYELOID LEUKAEMIA [None]
